FAERS Safety Report 24744280 (Version 1)
Quarter: 2024Q4

REPORT INFORMATION
  Report Type: Spontaneous
  Country: US (occurrence: None)
  Receive Date: 20241216
  Receipt Date: 20241216
  Transmission Date: 20250115
  Serious: Yes (Life-Threatening)
  Sender: Public
  Company Number: None

PATIENT
  Age: 73 Year
  Sex: Male
  Weight: 91 kg

DRUGS (1)
  1. EPINEPHRINE\LIDOCAINE HYDROCHLORIDE [Suspect]
     Active Substance: EPINEPHRINE\LIDOCAINE HYDROCHLORIDE
     Indication: Dental operation
     Dosage: OTHER ROUTE : OTHER;?
     Route: 050
     Dates: start: 20241113, end: 20241113

REACTIONS (3)
  - Dysphagia [None]
  - Choking [None]
  - Dyspnoea [None]

NARRATIVE: CASE EVENT DATE: 20241113
